FAERS Safety Report 6145650-X (Version None)
Quarter: 2009Q2

REPORT INFORMATION
  Report Type: 
  Country: None (occurrence: None)
  Receive Date: 20090407
  Receipt Date: 20090327
  Transmission Date: 20091009
  Serious: No
  Sender: FDA-Public Use
  Company Number: US-JNJFOC-20090307644

PATIENT
  Sex: Female
  Weight: 65.77 kg

DRUGS (2)
  1. DURAGESIC-100 [Suspect]
     Indication: BACK PAIN
     Route: 062
  2. NUVARING [Concomitant]
     Indication: CONTRACEPTION
     Dosage: 1 RING IN 4 WEEKS INTRAVAGINALLY
     Route: 067

REACTIONS (6)
  - ADVERSE EVENT [None]
  - APPLICATION SITE IRRITATION [None]
  - DRUG ADMINISTERED AT INAPPROPRIATE SITE [None]
  - INAPPROPRIATE SCHEDULE OF DRUG ADMINISTRATION [None]
  - PAIN [None]
  - SOMNOLENCE [None]
